FAERS Safety Report 24307950 (Version 1)
Quarter: 2024Q3

REPORT INFORMATION
  Report Type: Spontaneous
  Country: CN (occurrence: CN)
  Receive Date: 20240911
  Receipt Date: 20240911
  Transmission Date: 20241016
  Serious: Yes (Hospitalization)
  Sender: REGENERON
  Company Number: CN-SA-2024SA258611

PATIENT
  Age: 79 Year
  Sex: Male

DRUGS (4)
  1. PRALUENT [Suspect]
     Active Substance: ALIROCUMAB
     Indication: Hyperlipidaemia
     Dosage: 75 MG, 1X
     Route: 058
     Dates: start: 20240805
  2. IODIXANOL [Suspect]
     Active Substance: IODIXANOL
     Indication: Angiogram
     Dosage: 64 G, QD
     Route: 013
     Dates: start: 20240805
  3. NADROPARIN CALCIUM [Suspect]
     Active Substance: NADROPARIN CALCIUM
     Indication: Anticoagulant therapy
     Dosage: 4100 IU, Q12H
     Route: 058
     Dates: start: 20240806, end: 20240808
  4. RIVAROXABAN [Concomitant]
     Active Substance: RIVAROXABAN
     Indication: Anticoagulant therapy
     Dosage: 10 MG, QD
     Route: 048
     Dates: start: 2024, end: 20240806

REACTIONS (2)
  - Dermatitis allergic [Recovering/Resolving]
  - Rash pruritic [Recovering/Resolving]

NARRATIVE: CASE EVENT DATE: 20240808
